FAERS Safety Report 8401806-4 (Version None)
Quarter: 2012Q2

REPORT INFORMATION
  Report Type: 
  Country: None (occurrence: None)
  Receive Date: 20120529
  Receipt Date: 19880826
  Transmission Date: 20120825
  Serious: Yes (Other)
  Sender: FDA-Public Use
  Company Number: 004017

PATIENT
  Age: 62 Year
  Sex: Male

DRUGS (10)
  1. GUANFACINE HYDROCHLORIDE (GUANFACINE HYDROCHLORIDE) [Concomitant]
  2. ASPIRIN_DIALUMINATE (ASPIRIN_DIALUMINATE) [Concomitant]
  3. GEFARNATE (GEFARNATE) [Concomitant]
  4. TRIMEBUTANE MALEATE (TRIMEBUTANE MALEATE) [Concomitant]
  5. WARFARIN POTASSIUM (WARFARIN POTASSIUM) [Concomitant]
  6. NICORANDIL (NICORANDIL) [Concomitant]
  7. DILAZEP HYDROCHLORIDE (DILAZEP HYDROCHLORIDE) [Concomitant]
  8. NIFEDIPINE [Concomitant]
  9. PLETAL [Suspect]
     Dosage: 200 MG, DAILY DOSE, ORAL
     Route: 048
     Dates: start: 19880405, end: 19880621
  10. GLYBURIDE [Concomitant]

REACTIONS (5)
  - THROMBOSIS [None]
  - GASTROINTESTINAL EROSION [None]
  - GASTRITIS EROSIVE [None]
  - GASTRIC ULCER HAEMORRHAGE [None]
  - HAEMATOCRIT DECREASED [None]
